FAERS Safety Report 16837479 (Version 1)
Quarter: 2019Q3

REPORT INFORMATION
  Report Type: Spontaneous
  Country: US (occurrence: US)
  Receive Date: 20190923
  Receipt Date: 20190923
  Transmission Date: 20191005
  Serious: No
  Sender: FDA-Public Use
  Company Number: US-BIOGEN-2019BI00769764

PATIENT
  Age: 46 Year
  Sex: Female
  Weight: 48.58 kg

DRUGS (3)
  1. TECFIDERA [Suspect]
     Active Substance: DIMETHYL FUMARATE
     Route: 065
     Dates: start: 20190808
  2. TECFIDERA [Suspect]
     Active Substance: DIMETHYL FUMARATE
     Indication: PROGRESSIVE MULTIPLE SCLEROSIS
     Route: 065
     Dates: start: 20170522, end: 20180729
  3. TECFIDERA [Suspect]
     Active Substance: DIMETHYL FUMARATE
     Dosage: 1 CAPSULE BY MOUTH TWICE DAILY
     Route: 065
     Dates: start: 20190729, end: 20190907

REACTIONS (13)
  - Multiple sclerosis [Not Recovered/Not Resolved]
  - Hyperphagia [Unknown]
  - Gastric disorder [Not Recovered/Not Resolved]
  - Diarrhoea [Recovered/Resolved]
  - Nausea [Not Recovered/Not Resolved]
  - Decreased appetite [Unknown]
  - Abdominal discomfort [Unknown]
  - Off label use [Unknown]
  - Eye movement disorder [Not Recovered/Not Resolved]
  - Vomiting [Recovered/Resolved]
  - Malaise [Unknown]
  - Hyperchlorhydria [Unknown]
  - Flushing [Unknown]

NARRATIVE: CASE EVENT DATE: 201908
